FAERS Safety Report 22163906 (Version 6)
Quarter: 2023Q2

REPORT INFORMATION
  Report Type: Report from Study
  Country: US (occurrence: US)
  Receive Date: 20230401
  Receipt Date: 20230420
  Transmission Date: 20230722
  Serious: Yes (Life-Threatening, Hospitalization, Other)
  Sender: FDA-Public Use
  Company Number: US-JNJFOC-20230370229

PATIENT
  Age: 35 Year
  Sex: Male
  Weight: 50.9 kg

DRUGS (5)
  1. EPOPROSTENOL SODIUM [Suspect]
     Active Substance: EPOPROSTENOL SODIUM
     Indication: Pulmonary arterial hypertension
     Route: 042
  2. AMBRISENTAN [Concomitant]
     Active Substance: AMBRISENTAN
  3. LETAIRIS [Concomitant]
     Active Substance: AMBRISENTAN
  4. ADCIRCA [Concomitant]
     Active Substance: TADALAFIL
  5. REMODULIN [Concomitant]
     Active Substance: TREPROSTINIL

REACTIONS (12)
  - Cerebrovascular accident [Recovering/Resolving]
  - Device occlusion [Unknown]
  - Thrombosis [Unknown]
  - Complication associated with device [Unknown]
  - Underdose [Unknown]
  - Vision blurred [Not Recovered/Not Resolved]
  - Therapy change [Unknown]
  - Myalgia [Not Recovered/Not Resolved]
  - Dyspnoea exertional [Recovering/Resolving]
  - Flushing [Unknown]
  - Disturbance in attention [Unknown]
  - Amnesia [Unknown]

NARRATIVE: CASE EVENT DATE: 20230325
